FAERS Safety Report 26204019 (Version 1)
Quarter: 2025Q4

REPORT INFORMATION
  Report Type: Spontaneous
  Country: IR (occurrence: IR)
  Receive Date: 20251226
  Receipt Date: 20251226
  Transmission Date: 20260117
  Serious: Yes (Hospitalization)
  Sender: NOVO NORDISK
  Company Number: IR-NOVOPROD-1574026

PATIENT

DRUGS (2)
  1. VICTOZA [Suspect]
     Active Substance: LIRAGLUTIDE
     Dosage: UNK, 10 TIMES MORE THAN PRESCRIBED DOSE IN ONE INJECTION
  2. VICTOZA [Suspect]
     Active Substance: LIRAGLUTIDE
     Indication: Type 2 diabetes mellitus
     Dosage: 0.6 MG

REACTIONS (4)
  - Intestinal obstruction [Recovered/Resolved]
  - Accidental overdose [Recovered/Resolved]
  - Device dislocation [Unknown]
  - Device breakage [Unknown]
